FAERS Safety Report 14870052 (Version 2)
Quarter: 2018Q2

REPORT INFORMATION
  Report Type: Report from Study
  Country: IT (occurrence: IT)
  Receive Date: 20180509
  Receipt Date: 20180629
  Transmission Date: 20180711
  Serious: Yes (Other)
  Sender: FDA-Public Use
  Company Number: IT-PFIZER INC-2018187485

PATIENT
  Age: 58 Year
  Sex: Male

DRUGS (3)
  1. AULIN [Concomitant]
     Active Substance: NIMESULIDE
     Indication: RHEUMATOID ARTHRITIS
     Dosage: 100 MG, UNK
     Route: 048
     Dates: start: 20180323, end: 20180323
  2. AULIN [Concomitant]
     Active Substance: NIMESULIDE
     Indication: ARTHRALGIA
  3. ZITROMAX [Suspect]
     Active Substance: AZITHROMYCIN
     Indication: PNEUMONIA LEGIONELLA
     Dosage: 500 MG, AS NEEDED
     Route: 048
     Dates: start: 20180321, end: 20180323

REACTIONS (4)
  - Asthenia [Recovering/Resolving]
  - Pruritus [Recovering/Resolving]
  - Petechiae [Recovering/Resolving]
  - Purpura [Recovering/Resolving]

NARRATIVE: CASE EVENT DATE: 20180324
